FAERS Safety Report 6002996-3 (Version None)
Quarter: 2008Q4

REPORT INFORMATION
  Report Type: 
  Country: None (occurrence: None)
  Receive Date: 20081212
  Receipt Date: 20081202
  Transmission Date: 20090506
  Serious: Yes (Other)
  Sender: FDA-Public Use
  Company Number: CHPA2008CA21206

PATIENT
  Age: 79 Year
  Sex: Male

DRUGS (15)
  1. SCOPOLAMINE [Suspect]
     Indication: PROPHYLAXIS OF NAUSEA AND VOMITING
     Dates: start: 20080801
  2. METFORMIN HCL [Concomitant]
  3. PLAVIX [Concomitant]
  4. ALTACE [Concomitant]
  5. ASPIRIN [Concomitant]
  6. SYNTHROID [Concomitant]
  7. MONOCOR (BISOPROLOL FUMARATE) [Concomitant]
  8. HYDROCHLOROTHIAZIDE [Concomitant]
  9. EZETROL (EZETIMIBE) [Concomitant]
  10. PANTOLOC ^BYK GULDEN^ (PANTOPRAZOLE SODIUM) [Concomitant]
  11. NITRO-DUR [Concomitant]
  12. ALL OTHER THERAPEUTIC PRODUCTS (NO INGREDIENTS/SUBSTANCES) [Concomitant]
  13. CELEXA [Concomitant]
  14. NRV 10 [Concomitant]
  15. ^GLYCEMIA^ [Concomitant]

REACTIONS (12)
  - ANXIETY [None]
  - CONTUSION [None]
  - DELIRIUM [None]
  - DISORIENTATION [None]
  - FALL [None]
  - HALLUCINATION, VISUAL [None]
  - JOINT INJURY [None]
  - JUDGEMENT IMPAIRED [None]
  - MALAISE [None]
  - PSYCHOTIC DISORDER [None]
  - SPEECH DISORDER [None]
  - TREMOR [None]
